FAERS Safety Report 4372244-9 (Version None)
Quarter: 2004Q2

REPORT INFORMATION
  Report Type: 
  Country: None (occurrence: None)
  Receive Date: 20040603
  Receipt Date: 20040603
  Transmission Date: 20050107
  Serious: No
  Sender: FDA-Public Use
  Company Number: None

PATIENT
  Age: 15 Year
  Sex: Male
  Weight: 73.3 kg

DRUGS (8)
  1. ELITEK [Suspect]
     Indication: PROPHYLAXIS
     Dosage: 10.5 MG IV INTRAVENOUS
     Route: 042
     Dates: start: 20031105, end: 20031106
  2. ELITEK [Suspect]
     Indication: TUMOUR LYSIS SYNDROME
     Dosage: 10.5 MG IV INTRAVENOUS
     Route: 042
     Dates: start: 20031105, end: 20031106
  3. MORPHINE [Concomitant]
  4. NAHCO3 [Concomitant]
  5. CEFOXITIN [Concomitant]
  6. METRONIAZOLE [Concomitant]
  7. GENTAMICIN [Concomitant]
  8. HYDROCORTISONE [Concomitant]

REACTIONS (2)
  - HAEMOLYTIC ANAEMIA [None]
  - HYPERBILIRUBINAEMIA [None]
